FAERS Safety Report 14081806 (Version 3)
Quarter: 2017Q4

REPORT INFORMATION
  Report Type: Spontaneous
  Country: US (occurrence: US)
  Receive Date: 20171012
  Receipt Date: 20171108
  Transmission Date: 20180321
  Serious: No
  Sender: FDA-Public Use
  Company Number: US-MYLANLABS-2017M1045217

PATIENT
  Sex: Female

DRUGS (1)
  1. ESTRADIOL TRANSDERMAL SYSTEM [Suspect]
     Active Substance: ESTRADIOL
     Indication: PRODUCT USED FOR UNKNOWN INDICATION
     Dosage: 1 PATCH TWICE WEEKLY
     Dates: start: 201611, end: 201706

REACTIONS (5)
  - Increased appetite [Unknown]
  - Night sweats [Unknown]
  - Product adhesion issue [Unknown]
  - Urticaria [Unknown]
  - Mood altered [Unknown]
